FAERS Safety Report 12938468 (Version 1)
Quarter: 2016Q4

REPORT INFORMATION
  Report Type: Spontaneous
  Country: US (occurrence: US)
  Receive Date: 20161114
  Receipt Date: 20161114
  Transmission Date: 20170207
  Serious: Yes (Disabling)
  Sender: FDA-Public Use
  Company Number: None

PATIENT
  Age: 48 Year
  Sex: Male
  Weight: 90 kg

DRUGS (1)
  1. OMEPRAZOLE 20 MG [Suspect]
     Active Substance: OMEPRAZOLE
     Indication: DYSPEPSIA
     Dosage: ?          QUANTITY:1 CAPSULE(S);?
     Route: 048
     Dates: start: 20150801, end: 20161110

REACTIONS (10)
  - Fatigue [None]
  - Pollakiuria [None]
  - Rash [None]
  - Muscular weakness [None]
  - Dizziness [None]
  - Myalgia [None]
  - Apathy [None]
  - Erectile dysfunction [None]
  - Irritability [None]
  - Dysuria [None]

NARRATIVE: CASE EVENT DATE: 20161111
